FAERS Safety Report 4437107-9 (Version None)
Quarter: 2004Q3

REPORT INFORMATION
  Report Type: 
  Country: None (occurrence: None)
  Receive Date: 20040827
  Receipt Date: 20040814
  Transmission Date: 20050211
  Serious: Yes (Hospitalization, Other)
  Sender: FDA-Public Use
  Company Number: 2004025426

PATIENT
  Sex: Female

DRUGS (25)
  1. NEURONTIN [Suspect]
     Indication: NEUROPATHIC PAIN
     Dosage: 800 MG (400 MG, 2 IN 1 D), ORAL
     Route: 048
     Dates: start: 20010821
  2. ISOSORBIDE DINITRATE [Concomitant]
  3. SALBUTAMOL (SALBUTAMOL) [Concomitant]
  4. FUROSEMIDE [Concomitant]
  5. CLOPIDOGREL BISULFATE [Concomitant]
  6. METHAZOLAMIDE (METHAZOLAMIDE) [Concomitant]
  7. PAROXETINE HCL [Concomitant]
  8. IRBESARTAN (IRBESARTAN) [Concomitant]
  9. OXYCOCET (OXYCODONE HYDROCHLORIDE, PARACETAMOL) [Concomitant]
  10. FENTANYL [Concomitant]
  11. ISOPHANE INSULIN [Concomitant]
  12. ACETAMINOPHEN [Concomitant]
  13. POTASSIUM CHLORIDE [Concomitant]
  14. PREDNISOLONE [Concomitant]
  15. NITROGLYCERIN [Concomitant]
  16. LOPERAMIDE HYDROCHLORIDE [Concomitant]
  17. ZOLPIDEM TARTRATE [Concomitant]
  18. DOCUSATE (DOCUSATE) [Concomitant]
  19. CLONIDINE [Concomitant]
  20. LACTULOSE [Concomitant]
  21. PANTOPRAZOLE (PANTOPRAZOLE) [Concomitant]
  22. METOPROLOL (METOPROLOL) [Concomitant]
  23. METOLAZONE [Concomitant]
  24. AMLODIPINE [Concomitant]
  25. AMITRIPTYLINE HYDROCHLORIDE [Concomitant]

REACTIONS (11)
  - BLOOD CREATININE INCREASED [None]
  - BLOOD PRESSURE DIASTOLIC DECREASED [None]
  - CHEST PAIN [None]
  - CONSTIPATION [None]
  - DEHYDRATION [None]
  - DELIRIUM [None]
  - DIARRHOEA [None]
  - FEELING ABNORMAL [None]
  - GENERAL PHYSICAL HEALTH DETERIORATION [None]
  - PAIN [None]
  - PSYCHOTIC DISORDER [None]
